FAERS Safety Report 8516831-2 (Version None)
Quarter: 2012Q3

REPORT INFORMATION
  Report Type: 
  Country: None (occurrence: None)
  Receive Date: 20120718
  Receipt Date: 20120711
  Transmission Date: 20120928
  Serious: Yes (Hospitalization, Other)
  Sender: FDA-Public Use
  Company Number: US-SANOFI-AVENTIS-2012SA001185

PATIENT
  Age: 46 Year
  Sex: Male
  Weight: 83 kg

DRUGS (8)
  1. ASPIRIN [Concomitant]
  2. LANOXIN [Concomitant]
  3. WARFARIN SODIUM [Concomitant]
  4. LOPRESSOR [Concomitant]
  5. MULTI-VITAMINS [Concomitant]
  6. RANITIDINE [Concomitant]
  7. MULTAQ [Suspect]
     Indication: ATRIAL FIBRILLATION
     Route: 048
     Dates: start: 20100910, end: 20110215
  8. TRIAMTERENE AND HYDROCHLOROTHIAZIDE [Concomitant]

REACTIONS (10)
  - CHOLECYSTITIS ACUTE [None]
  - HEPATITIS [None]
  - DYSPNOEA [None]
  - NAUSEA [None]
  - MESENTERIC VEIN THROMBOSIS [None]
  - ATRIAL FIBRILLATION [None]
  - ABDOMINAL PAIN UPPER [None]
  - VOMITING [None]
  - PYREXIA [None]
  - DIZZINESS [None]
